FAERS Safety Report 14167678 (Version 2)
Quarter: 2018Q1

REPORT INFORMATION
  Report Type: Spontaneous
  Country: SE (occurrence: SE)
  Receive Date: 20171108
  Receipt Date: 20180303
  Transmission Date: 20180508
  Serious: Yes (Hospitalization)
  Sender: FDA-Public Use
  Company Number: SE-BRISTOL-MYERS SQUIBB COMPANY-BMS-2017-098556

PATIENT
  Age: 62 Year
  Sex: Male

DRUGS (2)
  1. ELIQUIS [Suspect]
     Active Substance: APIXABAN
     Indication: DEEP VEIN THROMBOSIS
     Dosage: 5 MG, 1 DAY INTERVAL
     Route: 065
     Dates: start: 20170917, end: 20170924
  2. ELIQUIS [Suspect]
     Active Substance: APIXABAN
     Indication: PULMONARY EMBOLISM
     Route: 065

REACTIONS (3)
  - Catheter site haemorrhage [Not Recovered/Not Resolved]
  - Scrotal haematocoele [Recovered/Resolved]
  - Post procedural haematuria [Not Recovered/Not Resolved]

NARRATIVE: CASE EVENT DATE: 20170924
